FAERS Safety Report 24753385 (Version 2)
Quarter: 2025Q1

REPORT INFORMATION
  Report Type: Report from Study
  Country: JP (occurrence: JP)
  Receive Date: 20241219
  Receipt Date: 20250115
  Transmission Date: 20250408
  Serious: Yes (Other)
  Sender: MYLAN
  Company Number: JP-MYE-2024M1113068AA

PATIENT
  Age: 66 Year
  Sex: Male

DRUGS (10)
  1. CYCLOSPORINE [Suspect]
     Active Substance: CYCLOSPORINE
     Indication: Immunosuppressant drug therapy
     Route: 065
  2. MYCOPHENOLATE MOFETIL [Suspect]
     Active Substance: MYCOPHENOLATE MOFETIL
     Indication: Ocular pemphigoid
     Route: 065
  3. BETAMETHASONE [Suspect]
     Active Substance: BETAMETHASONE
     Indication: Post procedural inflammation
     Route: 061
  4. BETAMETHASONE [Suspect]
     Active Substance: BETAMETHASONE
     Indication: Post procedural inflammation
     Route: 061
  5. BETAMETHASONE [Suspect]
     Active Substance: BETAMETHASONE
     Indication: Post procedural inflammation
     Route: 065
  6. BETAMETHASONE [Suspect]
     Active Substance: BETAMETHASONE
     Route: 065
  7. BETAMETHASONE [Suspect]
     Active Substance: BETAMETHASONE
     Route: 065
  8. METHYLPREDNISOLONE [Suspect]
     Active Substance: METHYLPREDNISOLONE
     Indication: Post procedural inflammation
     Route: 065
  9. CEFMENOXIME [Concomitant]
     Active Substance: CEFMENOXIME
     Indication: Post procedural inflammation
     Route: 061
  10. NEOMYCIN [Concomitant]
     Active Substance: NEOMYCIN
     Indication: Post procedural inflammation
     Route: 065

REACTIONS (2)
  - Herpes ophthalmic [Recovered/Resolved]
  - Off label use [Unknown]
